FAERS Safety Report 25858415 (Version 1)
Quarter: 2025Q3

REPORT INFORMATION
  Report Type: Spontaneous
  Country: EU (occurrence: EU)
  Receive Date: 20250929
  Receipt Date: 20250929
  Transmission Date: 20251021
  Serious: Yes (Hospitalization, Other)
  Sender: CHEPLAPHARM
  Company Number: None

PATIENT
  Age: 52 Year
  Sex: Male

DRUGS (9)
  1. CLONAZEPAM [Suspect]
     Active Substance: CLONAZEPAM
     Indication: Hypnotherapy
     Dosage: 2 TABLETS/DAY?DAILY DOSE: 2 DOSAGE FORM
     Route: 048
  2. COCAINE [Suspect]
     Active Substance: COCAINE
     Dates: start: 2023
  3. OXYBATE [Suspect]
     Active Substance: OXYBATE
     Dosage: 1.5G/H, 3 TIMES A WEEK, ALL EVENING?DAILY DOSE: 36 GRAM
     Route: 048
  4. 3-METHYLMETHCATHINONE [Suspect]
     Active Substance: 3-METHYLMETHCATHINONE
  5. VALIUM [Suspect]
     Active Substance: DIAZEPAM
     Route: 048
  6. PREGABALIN [Suspect]
     Active Substance: PREGABALIN
  7. ZOLPIDEM [Suspect]
     Active Substance: ZOLPIDEM TARTRATE
     Indication: Anxiolytic therapy
     Route: 048
  8. MIDOMAFETAMINE [Concomitant]
     Active Substance: MIDOMAFETAMINE
  9. HERBALS\TETRAHYDROCANNABINOL UNSPECIFIED [Concomitant]
     Active Substance: HERBALS\TETRAHYDROCANNABINOL UNSPECIFIED

REACTIONS (6)
  - Drug abuse [Not Recovered/Not Resolved]
  - Suicidal ideation [Unknown]
  - Hallucination [Not Recovered/Not Resolved]
  - Delusion [Not Recovered/Not Resolved]
  - Mydriasis [Recovered/Resolved]
  - Intentional product misuse [Not Recovered/Not Resolved]

NARRATIVE: CASE EVENT DATE: 20240908
